FAERS Safety Report 9221751 (Version 3)
Quarter: 2013Q3

REPORT INFORMATION
  Report Type: Report from Study
  Country: RU (occurrence: RU)
  Receive Date: 20130410
  Receipt Date: 20130715
  Transmission Date: 20140515
  Serious: Yes (Hospitalization)
  Sender: FDA-Public Use
  Company Number: RU-JNJFOC-20130202594

PATIENT
  Age: 82 Year
  Sex: Male
  Weight: 84.5 kg

DRUGS (35)
  1. CANAGLIFLOZIN [Suspect]
     Indication: TYPE 2 DIABETES MELLITUS
     Route: 048
     Dates: start: 20130202, end: 20130409
  2. CANAGLIFLOZIN [Suspect]
     Indication: TYPE 2 DIABETES MELLITUS
     Route: 048
     Dates: start: 20100517, end: 20130122
  3. INSULIN HUMAN [Concomitant]
     Indication: TYPE 2 DIABETES MELLITUS
     Dates: start: 20110303, end: 20121120
  4. INSULIN HUMAN [Concomitant]
     Indication: TYPE 2 DIABETES MELLITUS
     Dates: start: 20121121, end: 20130201
  5. INSULIN HUMAN [Concomitant]
     Indication: TYPE 2 DIABETES MELLITUS
     Dates: start: 20130202, end: 20130206
  6. INSULIN HUMAN [Concomitant]
     Indication: TYPE 2 DIABETES MELLITUS
     Dates: start: 20130207, end: 20130223
  7. INSULIN HUMAN [Concomitant]
     Indication: TYPE 2 DIABETES MELLITUS
     Dates: start: 20130224
  8. INSULIN HUMAN [Concomitant]
     Indication: TYPE 2 DIABETES MELLITUS
     Dates: start: 2008, end: 20110302
  9. ISOPHANE INSULIN [Concomitant]
     Indication: TYPE 2 DIABETES MELLITUS
     Dates: start: 20100623, end: 20100624
  10. ISOPHANE INSULIN [Concomitant]
     Indication: TYPE 2 DIABETES MELLITUS
     Dates: start: 20100625, end: 20101114
  11. ISOPHANE INSULIN [Concomitant]
     Indication: TYPE 2 DIABETES MELLITUS
     Dates: start: 20110214, end: 20121120
  12. ISOPHANE INSULIN [Concomitant]
     Indication: TYPE 2 DIABETES MELLITUS
     Dates: start: 20121121, end: 20130201
  13. ISOPHANE INSULIN [Concomitant]
     Indication: TYPE 2 DIABETES MELLITUS
     Dates: start: 20130202, end: 20130206
  14. ISOPHANE INSULIN [Concomitant]
     Indication: TYPE 2 DIABETES MELLITUS
     Dates: start: 20130207, end: 20130223
  15. ISOPHANE INSULIN [Concomitant]
     Indication: TYPE 2 DIABETES MELLITUS
     Dates: start: 20130224
  16. ISOPHANE INSULIN [Concomitant]
     Indication: TYPE 2 DIABETES MELLITUS
     Dates: start: 20101115, end: 20110213
  17. ISOPHANE INSULIN [Concomitant]
     Indication: TYPE 2 DIABETES MELLITUS
     Dates: start: 2008, end: 20110602
  18. THROMBO ASS [Concomitant]
     Indication: MYOCARDIAL ISCHAEMIA
     Route: 048
     Dates: start: 2004
  19. FINASTERIDE [Concomitant]
     Indication: BENIGN PROSTATIC HYPERPLASIA
     Route: 048
     Dates: start: 2006
  20. SIMVASTATIN [Concomitant]
     Indication: MYOCARDIAL ISCHAEMIA
     Route: 048
     Dates: start: 20111110, end: 20120401
  21. SIMVASTATIN [Concomitant]
     Indication: MYOCARDIAL ISCHAEMIA
     Route: 048
     Dates: start: 20120402
  22. SIMVASTATIN [Concomitant]
     Indication: MYOCARDIAL ISCHAEMIA
     Route: 048
     Dates: start: 20110315, end: 20110901
  23. SIMVASTATIN [Concomitant]
     Indication: MYOCARDIAL ISCHAEMIA
     Route: 048
     Dates: end: 20110314
  24. LOZAP PLUS [Concomitant]
     Indication: HYPERTENSION
     Route: 048
     Dates: start: 20101116, end: 20120401
  25. LOZAP PLUS [Concomitant]
     Indication: HYPERTENSION
     Route: 048
     Dates: start: 20120402
  26. AMLODIPINE [Concomitant]
     Indication: HYPERTENSION
     Route: 048
     Dates: start: 20110901, end: 20121112
  27. AMLODIPINE [Concomitant]
     Indication: HYPERTENSION
     Route: 048
     Dates: start: 20120426
  28. CURANTYL [Concomitant]
     Indication: ANGIOPATHY
     Route: 048
     Dates: start: 20120828, end: 20120927
  29. CURANTYL [Concomitant]
     Indication: ANGIOPATHY
     Route: 048
     Dates: start: 20120419, end: 20120518
  30. CURANTYL [Concomitant]
     Indication: ANGIOPATHY
     Route: 048
     Dates: start: 20100701, end: 20101214
  31. CURANTYL [Concomitant]
     Indication: ANGIOPATHY
     Route: 048
     Dates: start: 20121025
  32. CURANTYL [Concomitant]
     Indication: CARDIOVASCULAR DISORDER
     Route: 048
     Dates: start: 20100701, end: 20101214
  33. CURANTYL [Concomitant]
     Indication: CARDIOVASCULAR DISORDER
     Route: 048
     Dates: start: 20120419, end: 20120518
  34. CURANTYL [Concomitant]
     Indication: CARDIOVASCULAR DISORDER
     Route: 048
     Dates: start: 20120828, end: 20120927
  35. CURANTYL [Concomitant]
     Indication: CARDIOVASCULAR DISORDER
     Route: 048
     Dates: start: 20121025

REACTIONS (1)
  - Femoral neck fracture [Recovered/Resolved]
